FAERS Safety Report 16468387 (Version 1)
Quarter: 2019Q3

REPORT INFORMATION
  Report Type: Spontaneous
  Country: US (occurrence: US)
  Receive Date: 20190623
  Receipt Date: 20190623
  Transmission Date: 20191004
  Serious: Yes (Disabling)
  Sender: FDA-Public Use
  Company Number: None

PATIENT
  Age: 27 Year
  Sex: Female
  Weight: 53.98 kg

DRUGS (1)
  1. PARAGARD T 380A [Suspect]
     Active Substance: COPPER
     Indication: CONTRACEPTION
     Route: 067
     Dates: start: 20150429, end: 20190612

REACTIONS (3)
  - Device breakage [None]
  - Pain [None]
  - Complication of device removal [None]

NARRATIVE: CASE EVENT DATE: 20190612
